FAERS Safety Report 6670265-4 (Version None)
Quarter: 2010Q2

REPORT INFORMATION
  Report Type: 
  Country: None (occurrence: None)
  Receive Date: 20100405
  Receipt Date: 20100317
  Transmission Date: 20101027
  Serious: Yes (Death)
  Sender: FDA-Public Use
  Company Number: 1-21959447

PATIENT
  Age: 51 Year
  Sex: Male
  Weight: 154 kg

DRUGS (5)
  1. OXCARBAZEPINE TABLETS 150MG, 200MG AND 600MG [Suspect]
  2. XYLENE [Suspect]
     Indication: COMPLETED SUICIDE
     Dosage: , ORAL
     Route: 048
  3. NORDIAZEPAM [Suspect]
  4. IBUPROFEN [Suspect]
  5. METAMIZOL [Suspect]

REACTIONS (14)
  - ALCOHOL USE [None]
  - ASPHYXIA [None]
  - BONE FISSURE [None]
  - CEREBROVASCULAR DISORDER [None]
  - COMPLETED SUICIDE [None]
  - EXCORIATION [None]
  - EXPOSURE TO TOXIC AGENT [None]
  - GASTRIC HAEMORRHAGE [None]
  - HAEMORRHAGE [None]
  - INTERVERTEBRAL DISC DISORDER [None]
  - LARYNGEAL HAEMORRHAGE [None]
  - MUSCLE HAEMORRHAGE [None]
  - PULMONARY CONGESTION [None]
  - PULMONARY OEDEMA [None]
